FAERS Safety Report 10526600 (Version 2)
Quarter: 2014Q4

REPORT INFORMATION
  Report Type: Spontaneous
  Country: FR (occurrence: FR)
  Receive Date: 20141020
  Receipt Date: 20141229
  Transmission Date: 20150528
  Serious: Yes (Hospitalization, Other)
  Sender: FDA-Public Use
  Company Number: FR-ORION CORPORATION ORION PHARMA-ENTC2014-0374

PATIENT
  Age: 74 Year
  Sex: Female
  Weight: 53 kg

DRUGS (6)
  1. SINEMET [Concomitant]
     Active Substance: CARBIDOPA\LEVODOPA
     Route: 065
  2. MELATONIN [Concomitant]
     Active Substance: MELATONIN
     Dosage: 10 OT
     Route: 065
  3. NICOTINE. [Concomitant]
     Active Substance: NICOTINE
     Route: 065
  4. STALEVO [Suspect]
     Active Substance: CARBIDOPA\ENTACAPONE\LEVODOPA
     Indication: PARKINSON^S DISEASE
     Dosage: STRENGTH: 100/25/200 MG
     Route: 065
  5. VENLAFAXINE [Suspect]
     Active Substance: VENLAFAXINE HYDROCHLORIDE
     Indication: DEPRESSION
     Route: 065
  6. RIVOTRIL [Concomitant]
     Active Substance: CLONAZEPAM
     Route: 065

REACTIONS (8)
  - Treatment noncompliance [Unknown]
  - Nausea [Unknown]
  - Muscle atrophy [Unknown]
  - Tremor [Unknown]
  - General physical health deterioration [Unknown]
  - Gait disturbance [Unknown]
  - Therapy cessation [Unknown]
  - Depression [Unknown]

NARRATIVE: CASE EVENT DATE: 20141001
